FAERS Safety Report 19585965 (Version 1)
Quarter: 2021Q3

REPORT INFORMATION
  Report Type: Spontaneous
  Country: NL (occurrence: NL)
  Receive Date: 20210720
  Receipt Date: 20210720
  Transmission Date: 20211014
  Serious: Yes (Congenital Anomaly)
  Sender: FDA-Public Use
  Company Number: NL-PFIZER INC-2021842842

PATIENT
  Weight: .6 kg

DRUGS (5)
  1. PREGABALIN. [Suspect]
     Active Substance: PREGABALIN
     Indication: PSYCHOTIC DISORDER
     Dosage: 150 MG, TWICE A DAY
     Route: 064
  2. METHYLFENIDAAT HCL [Suspect]
     Active Substance: METHYLPHENIDATE HYDROCHLORIDE
     Indication: ATTENTION DEFICIT HYPERACTIVITY DISORDER
     Dosage: 7 DD 10 MG
     Route: 064
  3. HALOPERIDOL. [Suspect]
     Active Substance: HALOPERIDOL
     Indication: PSYCHOTIC DISORDER
     Dosage: 4 MG, ONCE A DAY
     Route: 064
  4. PAROXETINE. [Suspect]
     Active Substance: PAROXETINE
     Indication: DEPRESSION
     Dosage: 20 MG, ONCE A DAY
     Route: 064
  5. ZOPICLON [Suspect]
     Active Substance: ZOPICLONE
     Indication: POST-TRAUMATIC STRESS DISORDER
     Dosage: 7.5 MG, ONCE A DAY
     Route: 064

REACTIONS (4)
  - Ectopia cordis [Not Recovered/Not Resolved]
  - Abdominal wall anomaly [Not Recovered/Not Resolved]
  - Spina bifida [Not Recovered/Not Resolved]
  - Maternal exposure during pregnancy [Not Recovered/Not Resolved]

NARRATIVE: CASE EVENT DATE: 20210612
